FAERS Safety Report 9969323 (Version 2)
Quarter: 2014Q1

REPORT INFORMATION
  Report Type: Spontaneous
  Country: US (occurrence: US)
  Receive Date: 20140306
  Receipt Date: 20140320
  Transmission Date: 20141002
  Serious: Yes (Death, Hospitalization)
  Sender: FDA-Public Use
  Company Number: US-BIOGENIDEC-2014BI018549

PATIENT
  Age: 66 Year
  Sex: Female

DRUGS (15)
  1. TECFIDERA [Suspect]
     Indication: MULTIPLE SCLEROSIS
     Route: 048
     Dates: start: 201401, end: 20140303
  2. ASPIRIN [Concomitant]
  3. ASPIRIN [Concomitant]
  4. BACLOFEN [Concomitant]
  5. CALCIUM [Concomitant]
  6. IBUPROFEN [Concomitant]
  7. LASIX [Concomitant]
  8. METFORMIN HCL [Concomitant]
  9. OXYBUTYNIN CHLORIDE [Concomitant]
  10. ZOCOR [Concomitant]
  11. AMINOPHENAZONE [Concomitant]
  12. HYDROCODONE [Concomitant]
  13. VITAMIN B12 [Concomitant]
  14. IRON [Concomitant]
  15. CRANBERRY [Concomitant]

REACTIONS (4)
  - Multiple sclerosis [Fatal]
  - Urinary tract infection [Unknown]
  - Fluid retention [Unknown]
  - Asthenia [Unknown]
